FAERS Safety Report 25203333 (Version 1)
Quarter: 2025Q2

REPORT INFORMATION
  Report Type: Spontaneous
  Country: NL (occurrence: NL)
  Receive Date: 20250416
  Receipt Date: 20250416
  Transmission Date: 20250716
  Serious: Yes (Life-Threatening, Other)
  Sender: Unknown Manufacturer
  Company Number: None

PATIENT

DRUGS (1)
  1. METOPROLOL SUCCINATE [Suspect]
     Active Substance: METOPROLOL SUCCINATE
     Indication: Cardiac disorder
     Route: 048
     Dates: start: 20240930, end: 20250326

REACTIONS (11)
  - Suicide attempt [Not Recovered/Not Resolved]
  - Depressed level of consciousness [Unknown]
  - Delusion [Not Recovered/Not Resolved]
  - Feeling abnormal [Not Recovered/Not Resolved]
  - Amnesia [Unknown]
  - Depression [Unknown]
  - Insomnia [Unknown]
  - Nightmare [Unknown]
  - Nervousness [Unknown]
  - Anxiety [Unknown]
  - Tinnitus [Not Recovered/Not Resolved]
